FAERS Safety Report 6096219-7 (Version None)
Quarter: 2009Q1

REPORT INFORMATION
  Report Type: 
  Country: None (occurrence: None)
  Receive Date: 20090227
  Receipt Date: 20080929
  Transmission Date: 20090719
  Serious: No
  Sender: FDA-Public Use
  Company Number: A0750661A

PATIENT
  Age: 13 Year
  Sex: Male

DRUGS (2)
  1. LAMOTRIGINE [Suspect]
     Route: 048
  2. ABILIFY [Concomitant]

REACTIONS (4)
  - CRYING [None]
  - DRUG INEFFECTIVE [None]
  - EMOTIONAL DISTRESS [None]
  - FEELING GUILTY [None]
